FAERS Safety Report 14502054 (Version 4)
Quarter: 2018Q2

REPORT INFORMATION
  Report Type: Spontaneous
  Country: FR (occurrence: FR)
  Receive Date: 20180208
  Receipt Date: 20180402
  Transmission Date: 20180711
  Serious: Yes (Other)
  Sender: FDA-Public Use
  Company Number: FR-AUROBINDO-AUR-APL-2018-005204

PATIENT
  Age: 41 Year
  Sex: Male

DRUGS (13)
  1. METHOTREXATE. [Suspect]
     Active Substance: METHOTREXATE
     Indication: IMMUNOSUPPRESSANT DRUG THERAPY
     Dosage: ()
     Route: 065
  2. METHOTREXATE. [Suspect]
     Active Substance: METHOTREXATE
     Dosage: ()
  3. PREDNISONE. [Suspect]
     Active Substance: PREDNISONE
     Dosage: ()
  4. METHOTREXATE. [Suspect]
     Active Substance: METHOTREXATE
     Dosage: ()
  5. PREDNISONE. [Suspect]
     Active Substance: PREDNISONE
     Dosage: 20MG DAILY
     Route: 065
  6. METHOTREXATE. [Suspect]
     Active Substance: METHOTREXATE
     Indication: SARCOIDOSIS
     Dosage: ()
     Route: 065
  7. PREDNISONE. [Suspect]
     Active Substance: PREDNISONE
     Dosage: ()
  8. METHOTREXATE. [Suspect]
     Active Substance: METHOTREXATE
     Dosage: ()
     Route: 065
  9. PREDNISONE. [Suspect]
     Active Substance: PREDNISONE
     Indication: IMMUNOSUPPRESSANT DRUG THERAPY
     Dosage: 20MG DAILY
  10. METHOTREXATE. [Suspect]
     Active Substance: METHOTREXATE
     Dosage: ()
  11. PREDNISONE. [Suspect]
     Active Substance: PREDNISONE
     Dosage: 20 MG, QD
     Route: 065
  12. PREDNISONE. [Suspect]
     Active Substance: PREDNISONE
     Indication: SARCOIDOSIS
     Dosage: 20 MG, DAILY
     Route: 065
  13. METHOTREXATE. [Suspect]
     Active Substance: METHOTREXATE
     Dosage: ()
     Route: 065

REACTIONS (6)
  - Product use in unapproved indication [Unknown]
  - Arthritis [Recovered/Resolved]
  - Cryptococcal fungaemia [Recovering/Resolving]
  - Arthritis fungal [Recovering/Resolving]
  - Fungaemia [Recovered/Resolved]
  - Cryptococcosis [Recovered/Resolved]
